FAERS Safety Report 6945096-8 (Version None)
Quarter: 2010Q3

REPORT INFORMATION
  Report Type: 
  Country: None (occurrence: None)
  Receive Date: 20100827
  Receipt Date: 20100816
  Transmission Date: 20110219
  Serious: Yes (Death, Disabling, Other)
  Sender: FDA-Public Use
  Company Number: JP-SANOFI-AVENTIS-A01200905571

PATIENT
  Age: 67 Year
  Sex: Female

DRUGS (9)
  1. OXALIPLATIN [Suspect]
     Indication: COLON CANCER METASTATIC
     Route: 041
     Dates: start: 20090210, end: 20090210
  2. OXALIPLATIN [Suspect]
     Route: 041
     Dates: start: 20090113, end: 20090113
  3. AVASTIN [Suspect]
     Indication: COLON CANCER METASTATIC
     Route: 041
     Dates: start: 20090127, end: 20090127
  4. AVASTIN [Suspect]
     Route: 041
     Dates: start: 20090210, end: 20090210
  5. FLUOROURACIL [Suspect]
     Indication: COLON CANCER METASTATIC
     Dosage: 2 TIMES IN 2 WEEKS
     Route: 040
     Dates: start: 20090113, end: 20090113
  6. FLUOROURACIL [Suspect]
     Dosage: 2 TIMES IN 2 WEEKS
     Route: 040
     Dates: start: 20090211, end: 20090211
  7. CALCIUM LEVOFOLINATE [Suspect]
     Indication: COLON CANCER METASTATIC
     Route: 041
     Dates: start: 20090113, end: 20090113
  8. CALCIUM LEVOFOLINATE [Suspect]
     Route: 041
     Dates: start: 20090211, end: 20090211
  9. FOLINIC ACID [Suspect]

REACTIONS (9)
  - ABDOMINAL TENDERNESS [None]
  - BLOOD PRESSURE INCREASED [None]
  - CEREBELLAR HAEMORRHAGE [None]
  - HAEMATEMESIS [None]
  - HEPATIC FUNCTION ABNORMAL [None]
  - MALAISE [None]
  - NEUROPATHY PERIPHERAL [None]
  - PERCUSSION TEST ABNORMAL [None]
  - SENSE OF OPPRESSION [None]
